FAERS Safety Report 7576596-8 (Version None)
Quarter: 2011Q2

REPORT INFORMATION
  Report Type: 
  Country: None (occurrence: None)
  Receive Date: 20110628
  Receipt Date: 20110621
  Transmission Date: 20111010
  Serious: Yes (Hospitalization)
  Sender: FDA-Public Use
  Company Number: DE-BAYER-201024897GPV

PATIENT
  Age: 61 Year
  Sex: Male
  Weight: 93 kg

DRUGS (37)
  1. PROPRANOLOL [Concomitant]
     Indication: PROPHYLAXIS
     Dosage: 40 MG (DAILY DOSE), , ORAL
     Route: 048
     Dates: start: 19980101
  2. SPIRONOLACTONE [Concomitant]
     Dosage: 50 MG (DAILY DOSE), ,
     Dates: start: 20100707, end: 20100818
  3. OXAZEPAM [Concomitant]
     Indication: HAEMOGLOBIN DECREASED
     Dosage: 10 MG (DAILY DOSE), PRN, ORAL
     Route: 048
     Dates: start: 20091201
  4. STEROFUNDIN [Concomitant]
     Indication: DEHYDRATION
     Dosage: 500 ML (DAILY DOSE), ,
     Dates: start: 20100507, end: 20100507
  5. SORAFENIB (RAF KINASE INHIBITOR) [Suspect]
     Dosage: 400 MG, UNK
     Route: 048
     Dates: start: 20100514, end: 20100606
  6. SPIRONOLACTONE [Concomitant]
     Indication: PROPHYLAXIS
     Dosage: 100 MG (DAILY DOSE), , ORAL
     Route: 048
     Dates: start: 20091101, end: 20100507
  7. FUROSEMIDE [Concomitant]
     Indication: PROPHYLAXIS
     Dosage: 40 MG (DAILY DOSE), , ORAL
     Route: 048
     Dates: start: 20091101, end: 20100507
  8. VITAMIN B1 TAB [Concomitant]
     Indication: PALMAR-PLANTAR ERYTHRODYSAESTHESIA SYNDROME
     Dosage: 200 MG (DAILY DOSE), ,
     Dates: start: 20091101
  9. PLACEBO [Suspect]
     Dosage: 100 MG (DAILY DOSE), QD,
     Dates: start: 20100608, end: 20100712
  10. FUROSEMIDE [Concomitant]
     Dosage: 10 MG (DAILY DOSE), , ORAL
     Route: 048
     Dates: start: 20100915, end: 20100915
  11. EPLERENONE [Concomitant]
     Indication: PROPHYLAXIS
     Dosage: 50 MG (DAILY DOSE), ,
     Dates: start: 20100819
  12. FERRO DUODENAL [Concomitant]
     Indication: HAEMOGLOBIN DECREASED
     Dosage: 100 MG (DAILY DOSE), ,
     Dates: start: 20100819
  13. VITAMIN D [Concomitant]
     Indication: HYPOCALCAEMIA
     Dosage: 1000 IE
     Dates: start: 20100817
  14. SORAFENIB (RAF KINASE INHIBITOR) [Suspect]
     Indication: HEPATIC NEOPLASM MALIGNANT
     Dosage: 400 MG, BID
     Route: 048
     Dates: start: 20100426, end: 20100510
  15. LACTULOSE [Concomitant]
     Dosage: 20 MG (DAILY DOSE), ,
     Dates: start: 20100614
  16. OXAZEPAM [Concomitant]
     Indication: ANXIETY
  17. PLACEBO [Suspect]
     Indication: HEPATIC NEOPLASM MALIGNANT
     Route: 048
     Dates: start: 20100426, end: 20100510
  18. PLACEBO [Suspect]
     Dosage: UNK
     Dates: start: 20100511, end: 20100513
  19. PLACEBO [Suspect]
     Dosage: 50 MG (DAILY DOSE), QD,
     Dates: start: 20100819
  20. SORAFENIB (RAF KINASE INHIBITOR) [Suspect]
     Dosage: UNK
     Dates: start: 20100511, end: 20100513
  21. SORAFENIB (RAF KINASE INHIBITOR) [Suspect]
     Dosage: 400 MG, BID
     Route: 048
     Dates: start: 20100607, end: 20100712
  22. APYDAN [OXCARBAZEPINE] [Concomitant]
     Dosage: 600 MG (DAILY DOSE), ,
  23. DIAZEPAM RECTUBES [Concomitant]
     Indication: CONVULSION PROPHYLAXIS
     Dosage: 10 MG (DAILY DOSE), PRN,
     Dates: start: 20030101
  24. LOPERAMIDE [Concomitant]
     Dates: start: 20100719, end: 20100730
  25. PLACEBO [Suspect]
     Dosage: 100 MG (DAILY DOSE), QD,
     Dates: start: 20100713, end: 20100818
  26. RANITIDINE HCL [Concomitant]
     Indication: PROPHYLAXIS AGAINST GASTROINTESTINAL ULCER
     Dosage: 300 MG (DAILY DOSE), , ORAL
     Route: 048
     Dates: start: 20100315
  27. LACTULOSE [Concomitant]
     Indication: PROPHYLAXIS
     Dosage: 60 MG (DAILY DOSE), PRN, ORAL
     Route: 048
     Dates: start: 20091101, end: 20100614
  28. UREADERM [Concomitant]
     Indication: PALMAR-PLANTAR ERYTHRODYSAESTHESIA SYNDROME
     Dates: start: 20100607
  29. PLACEBO [Suspect]
     Dosage: 150 MG (DAILY DOSE), QD,
     Dates: start: 20100514, end: 20100607
  30. LACTULOSE [Concomitant]
     Dosage: 60 MG (DAILY DOSE), PRN, ORAL
     Route: 048
     Dates: start: 20101005
  31. APYDAN [OXCARBAZEPINE] [Concomitant]
     Dosage: 900 MG (DAILY DOSE), ,
     Dates: start: 20100521
  32. ELEKTROLYT-INFUSIONSLOESUNG 153 [Concomitant]
     Indication: ENCEPHALOPATHY
     Dosage: 500 ML (DAILY DOSE), ,
     Dates: start: 20100507, end: 20100507
  33. LOPERAMIDE [Concomitant]
     Indication: DIARRHOEA
     Dates: start: 20100607
  34. SORAFENIB (RAF KINASE INHIBITOR) [Suspect]
     Dosage: 400 MG, BID
     Route: 048
     Dates: start: 20100712, end: 20100726
  35. SORAFENIB (RAF KINASE INHIBITOR) [Suspect]
     Dosage: 400 MG, BID
     Route: 048
     Dates: start: 20100727
  36. APYDAN [OXCARBAZEPINE] [Concomitant]
     Indication: EPILEPSY
     Dosage: 1500 MG (DAILY DOSE), ,
     Dates: start: 20030101, end: 20100520
  37. ACESAL CALCIUM [Concomitant]
     Indication: HYPOCALCAEMIA
     Dosage: 1000 MG (DAILY DOSE), ,
     Dates: start: 20100817

REACTIONS (3)
  - UMBILICAL HERNIA [None]
  - ANGIODYSPLASIA [None]
  - HEPATIC ENCEPHALOPATHY [None]
